FAERS Safety Report 10070633 (Version 3)
Quarter: 2014Q2

REPORT INFORMATION
  Report Type: Spontaneous
  Country: US (occurrence: US)
  Receive Date: 20140410
  Receipt Date: 20140522
  Transmission Date: 20141212
  Serious: No
  Sender: FDA-Public Use
  Company Number: US-009507513-1404USA005338

PATIENT
  Age: 27 Year
  Sex: Female
  Weight: 86.62 kg

DRUGS (2)
  1. IMPLANON [Suspect]
     Indication: CONTRACEPTION
     Dosage: UNK
     Route: 059
     Dates: start: 20120207
  2. METFORMIN [Concomitant]

REACTIONS (5)
  - Device difficult to use [Unknown]
  - Unintended pregnancy [Unknown]
  - Medical device complication [Unknown]
  - Medical device complication [Unknown]
  - Drug dose omission [Unknown]
